FAERS Safety Report 22709867 (Version 2)
Quarter: 2024Q2

REPORT INFORMATION
  Report Type: Spontaneous
  Country: US (occurrence: US)
  Receive Date: 20230717
  Receipt Date: 20240606
  Transmission Date: 20240716
  Serious: Yes (Other)
  Sender: FDA-Public Use
  Company Number: US-NOVOPROD-1089704

PATIENT
  Age: 75 Year
  Sex: Male

DRUGS (5)
  1. NOVOLIN N [Suspect]
     Active Substance: INSULIN HUMAN
     Dosage: INCREASING DOSE
     Route: 058
  2. NOVOLIN N [Suspect]
     Active Substance: INSULIN HUMAN
     Indication: Diabetes mellitus
     Dosage: 60 IU, QD
     Route: 058
     Dates: start: 1994
  3. NOVOLIN R [Suspect]
     Active Substance: INSULIN HUMAN
     Indication: Diabetes mellitus
     Dosage: 34 UNITS
     Route: 058
     Dates: start: 1994
  4. NOVOLIN R [Suspect]
     Active Substance: INSULIN HUMAN
     Dosage: 60 IU, QD(40 UNITS MORNING,10-20 UNITS NIGHT DOSE INCREASED)
     Route: 058
     Dates: start: 1994
  5. GLYBURIDE [Concomitant]
     Active Substance: GLYBURIDE
     Indication: Diabetes mellitus
     Dosage: UNK
     Dates: start: 1990

REACTIONS (9)
  - Skin exfoliation [Unknown]
  - Myocardial infarction [Unknown]
  - Myocardial infarction [Unknown]
  - Myocardial infarction [Unknown]
  - Oedema peripheral [Unknown]
  - Amnesia [Unknown]
  - Dyspnoea [Unknown]
  - Skin injury [Unknown]
  - Sleep apnoea syndrome [Unknown]

NARRATIVE: CASE EVENT DATE: 20090101
